FAERS Safety Report 17507544 (Version 1)
Quarter: 2020Q1

REPORT INFORMATION
  Report Type: Spontaneous
  Country: NL (occurrence: NL)
  Receive Date: 20200306
  Receipt Date: 20200306
  Transmission Date: 20200409
  Serious: Yes (Other)
  Sender: FDA-Public Use
  Company Number: NL-AUROBINDO-AUR-APL-2020-010885

PATIENT
  Age: 58 Year
  Sex: Female

DRUGS (2)
  1. METOPROLOL. [Suspect]
     Active Substance: METOPROLOL
     Indication: PRODUCT USED FOR UNKNOWN INDICATION
     Dosage: UNK, (NOT STATED)
     Route: 065
     Dates: start: 201111
  2. CETIRIZINE [Concomitant]
     Active Substance: CETIRIZINE HYDROCHLORIDE
     Indication: PRODUCT USED FOR UNKNOWN INDICATION
     Dosage: 10 MILLIGRAM
     Route: 065

REACTIONS (13)
  - Skin exfoliation [Unknown]
  - Skin burning sensation [Recovering/Resolving]
  - Eyelid oedema [Recovering/Resolving]
  - Hypersensitivity [Recovering/Resolving]
  - Adverse drug reaction [Unknown]
  - Ear lobe infection [Recovering/Resolving]
  - Oedema peripheral [Recovering/Resolving]
  - Pain [Recovering/Resolving]
  - Skin tightness [Unknown]
  - Erythema [Recovering/Resolving]
  - Swelling face [Recovering/Resolving]
  - Face oedema [Recovering/Resolving]
  - Eye swelling [Recovering/Resolving]
